FAERS Safety Report 5002488-4 (Version None)
Quarter: 2006Q2

REPORT INFORMATION
  Report Type: 
  Country: None (occurrence: None)
  Receive Date: 20060515
  Receipt Date: 20051011
  Transmission Date: 20061013
  Serious: Yes (Hospitalization, Disabling)
  Sender: FDA-Public Use
  Company Number: US-MERCK-0510USA07085

PATIENT
  Age: 54 Year
  Sex: Male
  Weight: 91 kg

DRUGS (22)
  1. LIPITOR [Concomitant]
     Route: 065
     Dates: start: 20010606
  2. ZOCOR [Concomitant]
     Route: 065
     Dates: start: 20010606
  3. PRAVACHOL [Concomitant]
     Route: 065
     Dates: start: 20010606
  4. SKELAXIN [Concomitant]
     Route: 065
     Dates: start: 20040201
  5. ACYCLOVIR [Concomitant]
     Route: 065
     Dates: start: 20010401
  6. CARISOPRODOL [Concomitant]
     Route: 065
     Dates: start: 20010401
  7. NABUMETONE [Concomitant]
     Route: 065
     Dates: start: 20010401
  8. PHENYLPROPANOLAMINE [Concomitant]
     Route: 065
     Dates: start: 20010401
  9. ROBITUSSIN [Concomitant]
     Route: 065
     Dates: start: 20010401
  10. VIAGRA [Concomitant]
     Route: 065
     Dates: start: 20010401
  11. IMDUR [Concomitant]
     Route: 065
     Dates: start: 20010501
  12. HEPARIN [Concomitant]
     Route: 065
     Dates: start: 20010501
  13. NIASPAN [Concomitant]
     Route: 065
     Dates: start: 20010501
  14. ZETIA [Concomitant]
     Route: 065
     Dates: start: 20010501
  15. VIOXX [Suspect]
     Indication: BACK PAIN
     Route: 048
     Dates: start: 19991112, end: 20010501
  16. VIOXX [Suspect]
     Route: 048
     Dates: start: 20020222, end: 20020222
  17. VIOXX [Suspect]
     Route: 048
     Dates: start: 20010501, end: 20040901
  18. VIOXX [Suspect]
     Indication: INTERVERTEBRAL DISC DEGENERATION
     Route: 048
     Dates: start: 19991112, end: 20010501
  19. VIOXX [Suspect]
     Route: 048
     Dates: start: 20020222, end: 20020222
  20. VIOXX [Suspect]
     Route: 048
     Dates: start: 20010501, end: 20040901
  21. TOPROL-XL [Concomitant]
     Route: 065
     Dates: start: 20020223, end: 20020323
  22. PLAVIX [Concomitant]
     Route: 065
     Dates: start: 20010524, end: 20010629

REACTIONS (12)
  - ANGINA UNSTABLE [None]
  - BLOOD CHOLESTEROL INCREASED [None]
  - CORONARY ARTERY DISEASE [None]
  - CORONARY ARTERY RESTENOSIS [None]
  - ERECTILE DYSFUNCTION [None]
  - INTERVERTEBRAL DISC DEGENERATION [None]
  - MYOCARDIAL INFARCTION [None]
  - MYOCARDIAL ISCHAEMIA [None]
  - NON-HODGKIN'S LYMPHOMA [None]
  - PROSTATIC SPECIFIC ANTIGEN INCREASED [None]
  - RASH [None]
  - UPPER RESPIRATORY TRACT INFECTION [None]
